FAERS Safety Report 21598989 (Version 1)
Quarter: 2022Q4

REPORT INFORMATION
  Report Type: Spontaneous
  Country: US (occurrence: None)
  Receive Date: 20221115
  Receipt Date: 20221115
  Transmission Date: 20230113
  Serious: No
  Sender: FDA-Public Use
  Company Number: None

PATIENT
  Sex: Male

DRUGS (1)
  1. TRETINOIN [Suspect]
     Active Substance: TRETINOIN
     Dosage: OTHER FREQUENCY : BID DAYS 1-14;?
     Route: 048
     Dates: start: 20221021

REACTIONS (2)
  - Feeling abnormal [None]
  - Vision blurred [None]
